FAERS Safety Report 5043518-3 (Version None)
Quarter: 2006Q2

REPORT INFORMATION
  Report Type: 
  Country: None (occurrence: None)
  Receive Date: 20060601
  Receipt Date: 20060113
  Transmission Date: 20061013
  Serious: No
  Sender: FDA-Public Use
  Company Number: 2006PV007070

PATIENT
  Age: 48 Year
  Sex: Male
  Weight: 125.1928 kg

DRUGS (3)
  1. BYETTA [Suspect]
     Indication: DIABETES MELLITUS NON-INSULIN-DEPENDENT
     Dosage: 5 MCG; BID; SC
     Route: 058
     Dates: start: 20051201
  2. INSULIN LENTI [Concomitant]
  3. INSULIN LENTE [Concomitant]

REACTIONS (2)
  - DECREASED APPETITE [None]
  - WEIGHT DECREASED [None]
